FAERS Safety Report 22289339 (Version 1)
Quarter: 2023Q2

REPORT INFORMATION
  Report Type: Spontaneous
  Country: US (occurrence: US)
  Receive Date: 20230505
  Receipt Date: 20230505
  Transmission Date: 20230721
  Serious: Yes (Hospitalization)
  Sender: FDA-Public Use
  Company Number: US-BAYER-2023A062792

PATIENT
  Age: 63 Year
  Sex: Male
  Weight: 106.59 kg

DRUGS (84)
  1. XARELTO [Suspect]
     Active Substance: RIVAROXABAN
     Indication: Atrial fibrillation
     Dosage: 20 MG, QD
     Route: 048
     Dates: start: 202112
  2. ASPIRIN [Suspect]
     Active Substance: ASPIRIN
     Indication: Cardiovascular event prophylaxis
     Dosage: 81 MG, QD
     Route: 048
     Dates: start: 20220601
  3. ATORVASTATIN [Concomitant]
     Active Substance: ATORVASTATIN
     Indication: Hypercholesterolaemia
     Dosage: 80 MG, QD
     Route: 048
     Dates: start: 202112
  4. ATORVASTATIN [Concomitant]
     Active Substance: ATORVASTATIN
     Indication: Hyperlipidaemia
  5. PEPCID [Concomitant]
     Active Substance: FAMOTIDINE
     Indication: Dyspepsia
     Dosage: 20 MG, BID
     Route: 048
     Dates: start: 202112
  6. UMECLIDINIUM [Concomitant]
     Active Substance: UMECLIDINIUM
     Indication: Asthma-chronic obstructive pulmonary disease overlap syndrome
     Dosage: 62.5 DF, QD
     Route: 055
     Dates: start: 202112
  7. VILANTEROL [Concomitant]
     Active Substance: VILANTEROL
     Indication: Asthma-chronic obstructive pulmonary disease overlap syndrome
     Dosage: 25 DF, QD
     Route: 055
     Dates: start: 202112
  8. VENTOLIN HFA [Concomitant]
     Active Substance: ALBUTEROL SULFATE
     Indication: Asthma-chronic obstructive pulmonary disease overlap syndrome
     Dosage: 2 PUFF, PRN
     Route: 055
     Dates: start: 202112
  9. MELATONIN [Concomitant]
     Active Substance: MELATONIN
     Indication: Sleep disorder therapy
     Dosage: 5 MG, PRN
     Route: 048
     Dates: start: 202112
  10. MELATONIN [Concomitant]
     Active Substance: MELATONIN
     Indication: Sleep disorder therapy
     Dosage: TOTAL DAILY DOSE: 3 MILLIGRAM, PRN
     Route: 048
  11. TYLENOL PM [Concomitant]
     Active Substance: ACETAMINOPHEN\DIPHENHYDRAMINE
     Indication: Sleep disorder therapy
     Dosage: 200 MG, PRN
     Route: 048
     Dates: start: 202112
  12. TOUJEO [Concomitant]
     Active Substance: INSULIN GLARGINE
     Indication: Type 2 diabetes mellitus
     Dosage: 60 DF, QD
     Route: 058
     Dates: start: 202202
  13. TOUJEO [Concomitant]
     Active Substance: INSULIN GLARGINE
     Indication: Type 2 diabetes mellitus
     Dosage: 40 IU, QD
     Route: 058
  14. ACETAMINOPHEN [Concomitant]
     Active Substance: ACETAMINOPHEN
     Indication: Product used for unknown indication
     Dosage: 2600 MG, PRN
     Route: 048
     Dates: start: 20220530
  15. CARBOXYMETHYLCELLULOSE [Concomitant]
     Active Substance: CARBOXYMETHYLCELLULOSE
     Indication: Product used for unknown indication
     Dosage: 1 DROP, PRN
     Route: 047
     Dates: start: 20220531
  16. FUROSEMIDE [Concomitant]
     Active Substance: FUROSEMIDE
     Indication: Cardiac failure congestive
     Dosage: 60 MG, BID
     Route: 042
     Dates: start: 20220724
  17. FUROSEMIDE [Concomitant]
     Active Substance: FUROSEMIDE
     Indication: Cardiac failure congestive
     Dosage: 40 MG, BID
     Route: 048
     Dates: start: 20221118
  18. STEGLATRO [Concomitant]
     Active Substance: ERTUGLIFLOZIN PIDOLATE
     Indication: Type 2 diabetes mellitus
     Dosage: 15 MG, QD
     Route: 048
     Dates: start: 202206
  19. JANUVIA [Concomitant]
     Active Substance: SITAGLIPTIN PHOSPHATE
     Indication: Type 2 diabetes mellitus
     Dosage: 100 MG, QD
     Route: 048
     Dates: start: 202206
  20. NITROGLYCERIN [Concomitant]
     Active Substance: NITROGLYCERIN
     Indication: Cardiovascular event prophylaxis
     Dosage: 0.4 MG, PRN
     Route: 060
     Dates: start: 202206
  21. OXYCODONE [Concomitant]
     Active Substance: OXYCODONE
     Indication: Pain prophylaxis
     Dosage: 5 MG, PRN
     Route: 048
     Dates: start: 202206
  22. SPIRONOLACTONE [Concomitant]
     Active Substance: SPIRONOLACTONE
     Indication: Cardiac failure congestive
     Dosage: 25 MG, QD
     Route: 048
     Dates: start: 20220527
  23. SPIRONOLACTONE [Concomitant]
     Active Substance: SPIRONOLACTONE
     Indication: Cardiac failure congestive
     Dosage: 25 MG, QD
     Route: 048
     Dates: start: 20220731
  24. DAPAGLIFLOZIN [Concomitant]
     Active Substance: DAPAGLIFLOZIN
     Indication: Cardiac failure congestive
     Dosage: 10 MG, QD
     Route: 048
     Dates: start: 20220724
  25. DAPAGLIFLOZIN [Concomitant]
     Active Substance: DAPAGLIFLOZIN
     Indication: Cardiac failure congestive
     Dosage: 5 MG, QD
     Route: 048
     Dates: start: 20220909
  26. DAPAGLIFLOZIN [Concomitant]
     Active Substance: DAPAGLIFLOZIN
     Indication: Cardiac failure congestive
     Dosage: 10 MG, BID
     Route: 048
     Dates: start: 20221117
  27. ALBUTEROL\IPRATROPIUM [Concomitant]
     Active Substance: ALBUTEROL\IPRATROPIUM
     Indication: Chronic obstructive pulmonary disease
     Dosage: 1 PUFF(S), QID
     Route: 055
     Dates: start: 20220724
  28. ALBUTEROL\IPRATROPIUM [Concomitant]
     Active Substance: ALBUTEROL\IPRATROPIUM
     Indication: Chronic obstructive pulmonary disease
     Dosage: 3 ML, QID
     Route: 045
     Dates: start: 20221222, end: 20230110
  29. LINAGLIPTIN [Concomitant]
     Active Substance: LINAGLIPTIN
     Indication: Type 2 diabetes mellitus
     Dosage: 5 MG, QD
     Route: 048
     Dates: start: 20220724
  30. SODIUM ZIRCONIUM CYCLOSILICATE [Concomitant]
     Active Substance: SODIUM ZIRCONIUM CYCLOSILICATE
     Indication: Hyperkalaemia
     Dosage: 10 G, TID
     Route: 048
     Dates: start: 20220724
  31. METRONIDAZOLE [Concomitant]
     Active Substance: METRONIDAZOLE
     Indication: Product used for unknown indication
     Dosage: 500 MG, TID
     Route: 042
     Dates: start: 20220726
  32. ONDANSETRON [Concomitant]
     Active Substance: ONDANSETRON
     Indication: Nausea
     Dosage: 16 MG, PRN
     Route: 048
     Dates: start: 20220726
  33. ONDANSETRON [Concomitant]
     Active Substance: ONDANSETRON
     Indication: Nausea
     Route: 048
     Dates: start: 20220726
  34. HEPARIN SODIUM, PORCINE [Concomitant]
     Active Substance: HEPARIN SODIUM
     Indication: Thrombosis prophylaxis
     Dosage: 2 ML, BID
     Route: 042
     Dates: start: 20220727
  35. HEPARIN SODIUM, PORCINE [Concomitant]
     Active Substance: HEPARIN SODIUM
     Indication: Thrombosis prophylaxis
     Dosage: 5000 U, TID
     Route: 058
     Dates: start: 20220918
  36. LACTULOSE [Concomitant]
     Active Substance: LACTULOSE
     Indication: Encephalopathy
     Dosage: 20 G, BID
     Route: 048
     Dates: start: 20220727
  37. CYCLOBENZAPRINE [Concomitant]
     Active Substance: CYCLOBENZAPRINE
     Indication: Muscle spasms
     Dosage: 30 MG, PRN
     Route: 048
     Dates: start: 20220725
  38. DIGOXIN [Concomitant]
     Active Substance: DIGOXIN
     Indication: Atrial fibrillation
     Dosage: 125 ?G, QD
     Route: 042
     Dates: start: 20220730
  39. LOVENOX [Concomitant]
     Active Substance: ENOXAPARIN SODIUM
     Indication: Thrombosis prophylaxis
     Dosage: 1 MG/KG DAILY, FREQ: BID
     Route: 058
     Dates: start: 20220731
  40. METOPROLOL TARTRATE [Concomitant]
     Active Substance: METOPROLOL TARTRATE
     Indication: Cardiac failure congestive
     Dosage: 12.5 MG, QD
     Route: 048
     Dates: start: 20220731
  41. AMIODARONE [Concomitant]
     Active Substance: AMIODARONE
     Indication: Atrial fibrillation
     Dosage: 400 MG, BID
     Route: 048
     Dates: start: 20220807
  42. HEPARIN [Concomitant]
     Active Substance: HEPARIN SODIUM
     Indication: Thrombosis prophylaxis
     Dosage: 5300 U DAILY, PRN
     Route: 042
     Dates: start: 20220805
  43. HYDROCORTISONE [Concomitant]
     Active Substance: HYDROCORTISONE
     Indication: Haemorrhoids
     Dosage: 2.5 % DAILY, FREQ: BID
     Route: 054
     Dates: start: 20220807
  44. MILRINONE [Concomitant]
     Active Substance: MILRINONE
     Indication: Cardiac failure congestive
     Dosage: 2.23 ML DAILY, FREQ: UNKNOWN
     Route: 042
     Dates: start: 20220807
  45. POLYETHYLENE GLYCOLS [Concomitant]
     Active Substance: POLYETHYLENE GLYCOLS
     Indication: Constipation prophylaxis
     Dosage: 17 G, PRN
     Route: 048
     Dates: start: 20221018
  46. POTASSIUM CHLORIDE [Concomitant]
     Active Substance: POTASSIUM CHLORIDE
     Indication: Hypokalaemia
     Dosage: 20 MEQ, QD
     Route: 048
     Dates: start: 20220807
  47. SENNOSIDES A AND B [Concomitant]
     Active Substance: SENNOSIDES A AND B
     Indication: Constipation prophylaxis
     Dosage: 1 DF, QD
     Route: 048
     Dates: start: 20220807
  48. HYDRALAZINE [Concomitant]
     Active Substance: HYDRALAZINE HYDROCHLORIDE
     Indication: Hypertension
     Dosage: 10 MG, TID
     Route: 048
     Dates: start: 20220812
  49. TICAGRELOR [Concomitant]
     Active Substance: TICAGRELOR
     Indication: Thrombosis prophylaxis
     Dosage: 90 MG, BID
     Route: 048
     Dates: start: 20220811
  50. SIMETHICONE (DIMETHICONE) [Concomitant]
     Active Substance: DIMETHICONE
     Indication: Gastrointestinal disorder prophylaxis
     Dosage: 80 MG, PRN
     Route: 048
     Dates: start: 20220810
  51. OXYGEN [Concomitant]
     Active Substance: OXYGEN
     Indication: Acute respiratory failure
     Dosage: 3 L, CONT
     Route: 055
     Dates: start: 20220601
  52. TAMSULOSIN [Concomitant]
     Active Substance: TAMSULOSIN
     Indication: Benign prostatic hyperplasia
     Dosage: 0.4 MG, QD
     Route: 048
     Dates: start: 20220907
  53. TAMSULOSIN [Concomitant]
     Active Substance: TAMSULOSIN
     Indication: Benign prostatic hyperplasia
     Dosage: 0.8 MG, QD
     Route: 048
  54. COLLAGENASE [Concomitant]
     Active Substance: COLLAGENASE CLOSTRIDIUM HISTOLYTICUM
     Indication: Diabetic wound
     Dosage: 1 DF, QD
     Route: 061
     Dates: start: 20221018
  55. LIDOCAINE [Concomitant]
     Active Substance: LIDOCAINE
     Indication: Pain prophylaxis
     Dosage: 1 DF, QD
     Route: 065
     Dates: start: 20221018
  56. LIDOCAINE [Concomitant]
     Active Substance: LIDOCAINE
     Indication: Pain prophylaxis
     Dosage: 1 DF, QD
     Route: 003
     Dates: start: 20220608
  57. MAGNESIUM HYDROXIDE [Concomitant]
     Active Substance: MAGNESIUM HYDROXIDE
     Indication: Constipation
     Dosage: 10 ML, QD
     Route: 048
     Dates: start: 20221018
  58. MAGNESIUM OXIDE [Concomitant]
     Active Substance: MAGNESIUM OXIDE
     Indication: Constipation
     Dosage: 400 MG, QD
     Route: 048
     Dates: start: 20221018
  59. DOCUSATE;SENNA ALEXANDRINA [Concomitant]
     Indication: Constipation
     Dosage: 1 DF, BID
     Route: 048
     Dates: start: 20221018
  60. DOCUSATE;SENNA ALEXANDRINA [Concomitant]
     Indication: Constipation prophylaxis
     Dosage: UNK
  61. WOOL FAT;ZINC OXIDE [Concomitant]
     Indication: Proctalgia
     Route: 061
     Dates: start: 20221018
  62. HALDOL [Concomitant]
     Active Substance: HALOPERIDOL
     Indication: Depression
     Dosage: 2 MG, PRN
     Route: 042
     Dates: start: 20220915
  63. TRAZODONE [Concomitant]
     Active Substance: TRAZODONE HYDROCHLORIDE
     Indication: Sleep disorder therapy
     Dosage: 50 MG, QD
     Route: 048
     Dates: start: 20220918
  64. BUDESONIDE [Concomitant]
     Active Substance: BUDESONIDE
     Indication: Respiratory failure
     Dosage: 0.5 MG, BID
     Route: 055
     Dates: start: 20220927
  65. BUSPIRONE [Concomitant]
     Active Substance: BUSPIRONE HYDROCHLORIDE
     Indication: Depression
     Dosage: 15 MG, TID
     Route: 048
     Dates: start: 20221117
  66. DULCOLAX (BISACODYL) [Concomitant]
     Active Substance: BISACODYL
     Indication: Constipation
     Dosage: 10 MG, PRN
     Route: 054
  67. OMEPRAZOLE [Concomitant]
     Active Substance: OMEPRAZOLE
     Indication: Dyspepsia
     Dosage: 20 MG, QD
     Route: 048
  68. METOPROLOL SUCCINATE [Concomitant]
     Active Substance: METOPROLOL SUCCINATE
     Indication: Hypertension
     Dosage: 12.5 MG, QD
     Route: 048
  69. METOPROLOL SUCCINATE [Concomitant]
     Active Substance: METOPROLOL SUCCINATE
     Indication: Hypertension
     Dosage: 50 MG, QD
     Route: 048
     Dates: start: 20220605
  70. PANTOPRAZOLE [Concomitant]
     Active Substance: PANTOPRAZOLE
     Indication: Dyspepsia
     Dosage: 40 MG, QD
     Route: 042
     Dates: start: 20220605
  71. PANTOPRAZOLE [Concomitant]
     Active Substance: PANTOPRAZOLE
     Indication: Dyspepsia
     Dosage: 40 MG, QD
     Route: 048
     Dates: start: 20220608
  72. PANTOPRAZOLE [Concomitant]
     Active Substance: PANTOPRAZOLE
     Indication: Dyspepsia
     Dosage: 40 MG, QD
     Route: 048
     Dates: start: 20220730
  73. GABAPENTIN [Concomitant]
     Active Substance: GABAPENTIN
     Indication: Diabetic neuropathy
     Dosage: 600 MG, QD
     Route: 048
     Dates: start: 20220608
  74. TOUJEO [Concomitant]
     Active Substance: INSULIN GLARGINE
     Indication: Type 2 diabetes mellitus
     Dosage: 40 IU, QD
     Route: 058
  75. HUMALOG [Concomitant]
     Active Substance: INSULIN LISPRO
     Indication: Type 2 diabetes mellitus
     Dosage: 8 IU, TID
     Route: 058
  76. HUMALOG [Concomitant]
     Active Substance: INSULIN LISPRO
     Indication: Type 2 diabetes mellitus
     Dosage: UNK
     Route: 058
     Dates: start: 202112
  77. PREDNISONE [Concomitant]
     Active Substance: PREDNISONE
     Indication: Chronic obstructive pulmonary disease
     Dosage: 30 MG, QD
     Route: 048
  78. SODIUM CHLORIDE [Concomitant]
     Active Substance: SODIUM CHLORIDE
     Indication: Catheter management
     Dosage: 10 ML, BID
     Route: 042
  79. SODIUM CHLORIDE [Concomitant]
     Active Substance: SODIUM CHLORIDE
     Indication: Hyponatraemia
     Dosage: 5 ML, BID
     Route: 042
     Dates: start: 20220724
  80. COD-LIVER OIL;ZINC OXIDE [Concomitant]
     Indication: Skin disorder prophylaxis
     Dosage: 20 %, ONCE
     Route: 061
     Dates: start: 20230115, end: 20230115
  81. TRELEGY ELLIPTA [Concomitant]
     Active Substance: FLUTICASONE FUROATE\UMECLIDINIUM BROMIDE\VILANTEROL TRIFENATATE
     Indication: Asthma-chronic obstructive pulmonary disease overlap syndrome
     Dosage: 100 DF, QD
     Route: 055
     Dates: start: 202112
  82. ROBITUSSIN DM [Concomitant]
     Active Substance: DEXTROMETHORPHAN HYDROBROMIDE\GUAIFENESIN
     Indication: Cough
     Dosage: 10 ML, QID
     Route: 048
     Dates: start: 20221231, end: 20230202
  83. VANCOMYCIN [Concomitant]
     Active Substance: VANCOMYCIN
     Dosage: 1.25 G, QD
     Route: 042
  84. INSULIN LISPRO [Concomitant]
     Active Substance: INSULIN LISPRO
     Indication: Type 2 diabetes mellitus
     Dosage: 15 IU, QID
     Route: 058

REACTIONS (2)
  - Gastrointestinal haemorrhage [Recovered/Resolved]
  - Colitis ischaemic [Not Recovered/Not Resolved]

NARRATIVE: CASE EVENT DATE: 20230116
